FAERS Safety Report 7229764-9 (Version None)
Quarter: 2011Q1

REPORT INFORMATION
  Report Type: 
  Country: None (occurrence: None)
  Receive Date: 20110117
  Receipt Date: 20110112
  Transmission Date: 20110831
  Serious: Yes (Death)
  Sender: FDA-Public Use
  Company Number: AU-PFIZER INC-2010173213

PATIENT
  Age: 23 Year
  Sex: Female

DRUGS (7)
  1. VALPROIC ACID [Suspect]
  2. TRAMADOL [Suspect]
  3. MORPHINE HCL ELIXIR [Suspect]
  4. DIAZEPAM [Suspect]
  5. CLONAZEPAM [Suspect]
  6. NORDAZEPAM [Suspect]
  7. VENLAFAXINE HCL [Suspect]

REACTIONS (2)
  - DRUG INTERACTION [None]
  - OVERDOSE [None]
